FAERS Safety Report 14801038 (Version 1)
Quarter: 2018Q2

REPORT INFORMATION
  Report Type: Spontaneous
  Country: US (occurrence: US)
  Receive Date: 20180424
  Receipt Date: 20180424
  Transmission Date: 20180711
  Serious: Yes (Death)
  Sender: FDA-Public Use
  Company Number: PHHY2018US065032

PATIENT
  Age: 17 Year

DRUGS (14)
  1. ACICLOVIR [Suspect]
     Active Substance: ACYCLOVIR
     Indication: ANTIVIRAL PROPHYLAXIS
     Dosage: 250 MG/M2, Q8H (FROM DAY-5)
     Route: 042
  2. FILGRASTIM [Concomitant]
     Active Substance: FILGRASTIM
     Indication: WHITE BLOOD CELL COUNT ABNORMAL
     Dosage: 10 MCG/KG/DAY
     Route: 065
  3. TACROLIMUS. [Suspect]
     Active Substance: TACROLIMUS
     Indication: PROPHYLAXIS AGAINST GRAFT VERSUS HOST DISEASE
  4. MYCOPHENOLATE MOFETIL. [Suspect]
     Active Substance: MYCOPHENOLATE MOFETIL
     Indication: PROPHYLAXIS AGAINST GRAFT VERSUS HOST DISEASE
  5. IFOSFAMIDE. [Suspect]
     Active Substance: IFOSFAMIDE
     Indication: HODGKIN^S DISEASE NODULAR SCLEROSIS STAGE III
     Route: 065
  6. ETOPOSIDE. [Suspect]
     Active Substance: ETOPOSIDE
     Indication: HODGKIN^S DISEASE NODULAR SCLEROSIS STAGE III
     Route: 065
  7. MYCOPHENOLATE MOFETIL. [Suspect]
     Active Substance: MYCOPHENOLATE MOFETIL
     Indication: STEM CELL TRANSPLANT
     Dosage: 900 MG/M2, Q6H (STARTING FROM DAY-1)
     Route: 065
  8. AMPHOTERICIN B, LIPOSOME [Concomitant]
     Active Substance: AMPHOTERICIN B
     Indication: ANTIFUNGAL PROPHYLAXIS
     Dosage: 3 MG/KG, QD (FROM DAY-0)
     Route: 065
  9. SARGRAMOSTIM [Concomitant]
     Active Substance: SARGRAMOSTIM
     Indication: WHITE BLOOD CELL COUNT ABNORMAL
     Dosage: 250 MCG/M^2, QD (FROM DAY 0)
     Route: 042
  10. CARBOPLATIN. [Suspect]
     Active Substance: CARBOPLATIN
     Indication: HODGKIN^S DISEASE NODULAR SCLEROSIS STAGE III
     Route: 065
  11. TACROLIMUS. [Suspect]
     Active Substance: TACROLIMUS
     Indication: STEM CELL TRANSPLANT
     Dosage: 0.03 MG/KG, UNK (STARTING ON DAY -6)
     Route: 065
  12. VINORELBINE [Suspect]
     Active Substance: VINORELBINE\VINORELBINE TARTRATE
     Indication: HODGKIN^S DISEASE NODULAR SCLEROSIS STAGE III
     Route: 065
  13. SULFAMETHOXAZOLE AND TRIMETHOPRIM [Concomitant]
     Active Substance: SULFAMETHOXAZOLE\TRIMETHOPRIM
     Indication: ANTIFUNGAL PROPHYLAXIS
     Dosage: 5 MG/KG, QD (DEVIDED IN BID) (UNTIL DAY-2)
     Route: 065
  14. FLUCONAZOLE. [Concomitant]
     Active Substance: FLUCONAZOLE
     Indication: ANTIFUNGAL PROPHYLAXIS
     Dosage: 6-8 MG/KG, QD
     Route: 065

REACTIONS (3)
  - Varicella zoster virus infection [Fatal]
  - Therapy partial responder [Unknown]
  - Acute graft versus host disease [Fatal]
